FAERS Safety Report 7349343-2 (Version None)
Quarter: 2011Q1

REPORT INFORMATION
  Report Type: 
  Country: None (occurrence: None)
  Receive Date: 20110314
  Receipt Date: 20110309
  Transmission Date: 20110831
  Serious: Yes (Hospitalization, Other)
  Sender: FDA-Public Use
  Company Number: US-ELI_LILLY_AND_COMPANY-US201103003423

PATIENT
  Sex: Male
  Weight: 95.238 kg

DRUGS (7)
  1. ASPIRIN [Concomitant]
     Dosage: 325 MG, ONCE
     Dates: start: 20100819, end: 20100819
  2. ZOCOR [Concomitant]
     Indication: BLOOD CHOLESTEROL
     Dosage: 80 MG, DAILY (1/D)
     Route: 048
     Dates: start: 20100820
  3. PRASUGREL HYDROCHLORIDE [Suspect]
     Indication: ACUTE CORONARY SYNDROME
     Dosage: 60 MG, ONCE
     Dates: start: 20100819, end: 20100819
  4. LOPRESSOR [Concomitant]
     Indication: HYPERTENSION
     Dosage: 50 MG, 2/D
     Route: 048
     Dates: start: 20100819
  5. ASPIRIN [Concomitant]
     Dosage: 81 MG, DAILY (1/D)
     Dates: start: 20100820
  6. PRASUGREL HYDROCHLORIDE [Suspect]
     Dosage: 10 MG, DAILY (1/D)
     Dates: start: 20100820
  7. METFORMIN [Concomitant]
     Indication: DIABETES MELLITUS
     Dosage: 500 MG, DAILY (1/D)
     Route: 048
     Dates: start: 20100823

REACTIONS (1)
  - IN-STENT CORONARY ARTERY RESTENOSIS [None]
